FAERS Safety Report 4896148-8 (Version None)
Quarter: 2006Q1

REPORT INFORMATION
  Report Type: 
  Country: None (occurrence: None)
  Receive Date: 20060126
  Receipt Date: 20060117
  Transmission Date: 20060701
  Serious: Yes (Hospitalization, Other)
  Sender: FDA-Public Use
  Company Number: 2006009229

PATIENT
  Age: 61 Year
  Sex: Male
  Weight: 77.5651 kg

DRUGS (3)
  1. LIPITOR [Suspect]
     Indication: BLOOD CHOLESTEROL INCREASED
     Dosage: 10 MG (10 MG, 1 IN 1 D)
     Dates: start: 20050606
  2. VALSARTAN [Concomitant]
  3. TOPROL-XL [Concomitant]

REACTIONS (7)
  - CEREBRAL ARTERY EMBOLISM [None]
  - DYSPNOEA [None]
  - EPISTAXIS [None]
  - HYPERTENSION [None]
  - MOUTH HAEMORRHAGE [None]
  - NASAL DRYNESS [None]
  - NASAL SEPTAL OPERATION [None]
